FAERS Safety Report 12488629 (Version 1)
Quarter: 2016Q2

REPORT INFORMATION
  Report Type: Report from Study
  Country: PE (occurrence: PE)
  Receive Date: 20160622
  Receipt Date: 20160622
  Transmission Date: 20160815
  Serious: Yes (Other)
  Sender: FDA-Public Use
  Company Number: PE-009507513-1606PER009063

PATIENT
  Age: 70 Year
  Sex: Female

DRUGS (1)
  1. NASONEX [Suspect]
     Active Substance: MOMETASONE FUROATE
     Indication: NASAL CONGESTION
     Dosage: 1 PUFF IN EACH NOSTRIL, BID
     Route: 045

REACTIONS (3)
  - Hypersensitivity [Unknown]
  - Neovascular age-related macular degeneration [Unknown]
  - Inappropriate schedule of drug administration [Unknown]
